FAERS Safety Report 4669575-1 (Version None)
Quarter: 2005Q2

REPORT INFORMATION
  Report Type: 
  Country: None (occurrence: None)
  Receive Date: 20050523
  Receipt Date: 20050314
  Transmission Date: 20051028
  Serious: Yes (Death, Hospitalization)
  Sender: FDA-Public Use
  Company Number: PHNU2005DE01359

PATIENT
  Age: 77 Year
  Sex: Male
  Weight: 86 kg

DRUGS (3)
  1. GLEEVEC [Suspect]
     Indication: GASTROINTESTINAL STROMAL TUMOUR
     Dosage: 400 MG, QD
     Route: 048
     Dates: start: 20040503, end: 20050310
  2. ADALAT [Concomitant]
     Route: 048
  3. ZINK [Concomitant]
     Dosage: 1 DF, QD
     Route: 048

REACTIONS (18)
  - ABDOMINAL DISCOMFORT [None]
  - ANOREXIA [None]
  - BIOPSY BONE MARROW ABNORMAL [None]
  - BONE MARROW DISORDER [None]
  - C-REACTIVE PROTEIN INCREASED [None]
  - DRY MOUTH [None]
  - DYSGEUSIA [None]
  - DYSPNOEA [None]
  - EXANTHEM [None]
  - HICCUPS [None]
  - MULTI-ORGAN FAILURE [None]
  - MYELODYSPLASTIC SYNDROME [None]
  - NAUSEA [None]
  - NOSOCOMIAL INFECTION [None]
  - PANCYTOPENIA [None]
  - PNEUMOCYSTIS JIROVECI PNEUMONIA [None]
  - PYREXIA [None]
  - STOMATITIS [None]
